FAERS Safety Report 8903665 (Version 3)
Quarter: 2014Q1

REPORT INFORMATION
  Report Type: Spontaneous
  Country: GB (occurrence: GB)
  Receive Date: 20121112
  Receipt Date: 20140127
  Transmission Date: 20141002
  Serious: Yes (Other)
  Sender: FDA-Public Use
  Company Number: PHHY2012GB102969

PATIENT
  Age: 47 Year
  Sex: Male
  Weight: 105 kg

DRUGS (2)
  1. CITALOPRAM [Suspect]
     Indication: DEPRESSION
     Dosage: 20 MG
     Dates: start: 20120709, end: 20121015
  2. RANITIDINE [Concomitant]
     Dosage: UNK UKN, UNK
     Dates: start: 20120619, end: 20120818

REACTIONS (3)
  - Euphoric mood [Recovered/Resolved]
  - Hypoaesthesia [Recovered/Resolved]
  - Paraesthesia [Recovered/Resolved]
